FAERS Safety Report 25272858 (Version 1)
Quarter: 2025Q2

REPORT INFORMATION
  Report Type: Report from Study
  Country: US (occurrence: US)
  Receive Date: 20250506
  Receipt Date: 20250506
  Transmission Date: 20250716
  Serious: Yes (Hospitalization, Other)
  Sender: ABBVIE
  Company Number: US-ABBVIE-6265317

PATIENT
  Age: 60 Year
  Sex: Male

DRUGS (1)
  1. HUMIRA [Suspect]
     Active Substance: ADALIMUMAB
     Indication: Psoriatic arthropathy
     Route: 058
     Dates: start: 20230123

REACTIONS (2)
  - Pneumothorax [Not Recovered/Not Resolved]
  - Coccidioidomycosis [Not Recovered/Not Resolved]

NARRATIVE: CASE EVENT DATE: 20250226
